FAERS Safety Report 13023322 (Version 1)
Quarter: 2016Q4

REPORT INFORMATION
  Report Type: Spontaneous
  Country: US (occurrence: US)
  Receive Date: 20161213
  Receipt Date: 20161213
  Transmission Date: 20170207
  Serious: No
  Sender: FDA-Public Use
  Company Number: US-APOTEX-2016AP005952

PATIENT
  Age: 33 Year
  Sex: Female

DRUGS (1)
  1. NICOTINE TRANSDERMAL SYSTEM [Suspect]
     Active Substance: NICOTINE
     Indication: SMOKING CESSATION THERAPY
     Dosage: UNK
     Route: 065
     Dates: start: 2015

REACTIONS (2)
  - Application site pruritus [Recovered/Resolved]
  - Application site paraesthesia [Recovered/Resolved]

NARRATIVE: CASE EVENT DATE: 2015
